FAERS Safety Report 6145255-0 (Version None)
Quarter: 2009Q2

REPORT INFORMATION
  Report Type: 
  Country: None (occurrence: None)
  Receive Date: 20090406
  Receipt Date: 20090327
  Transmission Date: 20091009
  Serious: Yes (Other)
  Sender: FDA-Public Use
  Company Number: PHEH2009US03118

PATIENT
  Sex: Male

DRUGS (3)
  1. CLOZAPINE [Suspect]
     Indication: PSYCHOTIC DISORDER
     Dosage: UNK
     Route: 048
     Dates: start: 19921019
  2. CLOZAPINE [Suspect]
     Dosage: 750 MG, BID
     Route: 048
     Dates: end: 20090201
  3. CLOZAPINE [Suspect]
     Dosage: 50 MG, QD
     Route: 048
     Dates: start: 20090327

REACTIONS (5)
  - ANAPLASTIC LARGE CELL LYMPHOMA T- AND NULL-CELL TYPES REFRACTORY [None]
  - GRANULOCYTOPENIA [None]
  - LEUKOPENIA [None]
  - NEUTROPHIL COUNT DECREASED [None]
  - WHITE BLOOD CELL COUNT [None]
